FAERS Safety Report 4392237-5 (Version None)
Quarter: 2004Q3

REPORT INFORMATION
  Report Type: 
  Country: None (occurrence: None)
  Receive Date: 20040702
  Receipt Date: 20040622
  Transmission Date: 20050211
  Serious: Yes (Other)
  Sender: FDA-Public Use
  Company Number: 2004041567

PATIENT
  Sex: Female

DRUGS (4)
  1. DILANTIN KAPSEAL [Suspect]
     Indication: GRAND MAL CONVULSION
     Dosage: 300 MG , ORAL
     Route: 048
  2. PHENYTOIN [Suspect]
     Indication: ILL-DEFINED DISORDER
     Dosage: ORAL
     Route: 048
  3. CENTRUM SILVER (ASCORBIC ACID, CALCIUM, MINERALS NOS, RENTINOL, TOCOPE [Concomitant]
  4. BECOSYM FORTE (NICOTINAMIDE, PYRIDOXINE HYDROCHLORIDE, REIBOFLAVIN, TH [Concomitant]

REACTIONS (6)
  - ASTHENIA [None]
  - CONVULSION [None]
  - FATIGUE [None]
  - OEDEMA PERIPHERAL [None]
  - PHARMACEUTICAL PRODUCT COMPLAINT [None]
  - WEIGHT DECREASED [None]
